FAERS Safety Report 9365600 (Version 1)
Quarter: 2013Q3

REPORT INFORMATION
  Report Type: Spontaneous
  Country: US (occurrence: None)
  Receive Date: 20130624
  Receipt Date: 20130624
  Transmission Date: 20140515
  Serious: Yes (Life-Threatening, Hospitalization)
  Sender: FDA-Public Use
  Company Number: None

PATIENT
  Age: 53 Year
  Sex: Male
  Weight: 92 kg

DRUGS (8)
  1. OCTREOTIDE ACETATE [Suspect]
     Indication: NEUROENDOCRINE TUMOUR
     Route: 030
     Dates: start: 20120524
  2. EVEROLIMUS [Suspect]
     Indication: NEUROENDOCRINE TUMOUR
     Route: 048
     Dates: start: 20120722
  3. BACTRIM DS [Concomitant]
  4. DIAZOXIDE 100MG [Concomitant]
  5. HYDROCODONE 5MG-500MG TABLET [Concomitant]
  6. LIPITOR (ATORVASTATIN) [Concomitant]
  7. LOVENOX (ENOXAPARIN) [Concomitant]
  8. VITAMIN D3 [Concomitant]

REACTIONS (1)
  - Hypoglycaemia [None]
